FAERS Safety Report 13964023 (Version 1)
Quarter: 2017Q3

REPORT INFORMATION
  Report Type: Spontaneous
  Country: US (occurrence: US)
  Receive Date: 20170913
  Receipt Date: 20170913
  Transmission Date: 20171128
  Serious: Yes (Hospitalization)
  Sender: FDA-Public Use
  Company Number: US-EMD SERONO-7030644

PATIENT
  Age: 47 Year
  Sex: Female

DRUGS (2)
  1. TYLENOL [Concomitant]
     Active Substance: ACETAMINOPHEN
     Indication: PREMEDICATION
  2. REBIF [Suspect]
     Active Substance: INTERFERON BETA-1A
     Indication: MULTIPLE SCLEROSIS
     Route: 058
     Dates: start: 20101201, end: 20101201

REACTIONS (7)
  - Drug hypersensitivity [Recovering/Resolving]
  - Asthenia [Unknown]
  - Back pain [Unknown]
  - Fatigue [Unknown]
  - Pain in extremity [Unknown]
  - Influenza like illness [Unknown]
  - Injection site reaction [Unknown]

NARRATIVE: CASE EVENT DATE: 201012
